FAERS Safety Report 9278763 (Version 2)
Quarter: 2013Q2

REPORT INFORMATION
  Report Type: Spontaneous
  Country: IE (occurrence: IE)
  Receive Date: 20130508
  Receipt Date: 20130619
  Transmission Date: 20140414
  Serious: Yes (Other)
  Sender: FDA-Public Use
  Company Number: IE-PFIZER INC-2013139723

PATIENT
  Age: 45 Year
  Sex: Female

DRUGS (1)
  1. ECALTA [Suspect]
     Indication: ANASTOMOTIC LEAK
     Dosage: 200 MG, DAILY
     Route: 042
     Dates: start: 20130501, end: 20130501

REACTIONS (4)
  - Loss of consciousness [Recovered/Resolved]
  - Chest discomfort [Recovered/Resolved]
  - Dyspnoea [Recovered/Resolved]
  - Hypersensitivity [Recovered/Resolved]
